FAERS Safety Report 4910840-8 (Version None)
Quarter: 2006Q1

REPORT INFORMATION
  Report Type: 
  Country: None (occurrence: None)
  Receive Date: 20060214
  Receipt Date: 20051116
  Transmission Date: 20060701
  Serious: Yes (Hospitalization)
  Sender: FDA-Public Use
  Company Number: JP-JPN-A20052778

PATIENT
  Age: 32 Year
  Sex: Female
  Weight: 52 kg

DRUGS (4)
  1. VALTREX [Suspect]
     Indication: HERPES SIMPLEX
     Dosage: 500MG TWICE PER DAY
     Route: 048
     Dates: start: 20050916, end: 20050920
  2. ZOVIRAX [Concomitant]
     Indication: HERPES SIMPLEX
     Dosage: 250MG THREE TIMES PER DAY
     Route: 042
     Dates: start: 20050918, end: 20050922
  3. ISOTONIC SODIUM CHLORIDE SOLUTION [Concomitant]
     Dosage: 100ML THREE TIMES PER DAY
     Dates: start: 20050918, end: 20050919
  4. ATARAX [Concomitant]

REACTIONS (13)
  - BLOOD ALKALINE PHOSPHATASE INCREASED [None]
  - BLOOD BILIRUBIN INCREASED [None]
  - BLOOD CALCIUM DECREASED [None]
  - BLOOD CHLORIDE INCREASED [None]
  - BLOOD UREA INCREASED [None]
  - C-REACTIVE PROTEIN INCREASED [None]
  - EOSINOPHIL COUNT INCREASED [None]
  - EYELID OEDEMA [None]
  - FACE OEDEMA [None]
  - HAEMATOCRIT INCREASED [None]
  - NEUTROPHIL COUNT DECREASED [None]
  - PRURITUS [None]
  - RASH [None]
